FAERS Safety Report 16752509 (Version 1)
Quarter: 2019Q3

REPORT INFORMATION
  Report Type: Spontaneous
  Country: CA (occurrence: CA)
  Receive Date: 20190828
  Receipt Date: 20190828
  Transmission Date: 20191005
  Serious: Yes (Other)
  Sender: FDA-Public Use
  Company Number: CA-TEVA-2019-CA-1099462

PATIENT
  Age: 43 Year
  Sex: Male

DRUGS (2)
  1. MORPHINE SULFATE. [Suspect]
     Active Substance: MORPHINE SULFATE
     Indication: PRODUCT USED FOR UNKNOWN INDICATION
     Route: 065
  2. CANNABIS SATIVA [Suspect]
     Active Substance: CANNABIS SATIVA SUBSP. SATIVA FLOWERING TOP
     Indication: PRODUCT USED FOR UNKNOWN INDICATION
     Route: 065

REACTIONS (2)
  - Substance dependence [Unknown]
  - Substance abuse [Unknown]
